FAERS Safety Report 9613927 (Version 2)
Quarter: 2013Q4

REPORT INFORMATION
  Report Type: Report from Study
  Country: GB (occurrence: GB)
  Receive Date: 20131010
  Receipt Date: 20131010
  Transmission Date: 20140711
  Serious: Yes (Other)
  Sender: FDA-Public Use
  Company Number: GB-ROCHE-1216058

PATIENT
  Age: 43 Year
  Sex: Male
  Weight: 110.6 kg

DRUGS (8)
  1. TOCILIZUMAB [Suspect]
     Indication: RHEUMATOID ARTHRITIS
     Dosage: DATE OF LAST DOSE PRIOR TO SAE: 04/SEP/2013
     Route: 042
     Dates: start: 20130207
  2. TOCILIZUMAB [Suspect]
     Route: 042
     Dates: start: 20130314
  3. TOCILIZUMAB [Suspect]
     Route: 042
     Dates: start: 20130411, end: 20131002
  4. METHOTREXATE [Concomitant]
     Route: 048
  5. HYDROXYCHLOROQUINE [Concomitant]
     Route: 048
  6. SULPHASALAZINE [Concomitant]
     Route: 048
  7. IBUPROFEN [Concomitant]
     Dosage: 200-400MG
     Route: 048
  8. ARCOXIA [Concomitant]
     Route: 048

REACTIONS (2)
  - Rectal haemorrhage [Not Recovered/Not Resolved]
  - Rectal haemorrhage [Recovered/Resolved]
